FAERS Safety Report 6806688-X (Version None)
Quarter: 2010Q2

REPORT INFORMATION
  Report Type: 
  Country: None (occurrence: None)
  Receive Date: 20100629
  Receipt Date: 20080417
  Transmission Date: 20101027
  Serious: No
  Sender: FDA-Public Use
  Company Number: US-PFIZER INC-2008030283

PATIENT
  Sex: Male
  Weight: 100.9 kg

DRUGS (12)
  1. VIAGRA [Suspect]
     Indication: ERECTILE DYSFUNCTION
     Route: 048
     Dates: start: 20040101
  2. TAMSULOSIN HYDROCHLORIDE [Concomitant]
  3. TERAZOSIN HCL [Concomitant]
  4. SIMVASTATIN [Concomitant]
  5. OMEPRAZOLE [Concomitant]
  6. LISINOPRIL [Concomitant]
  7. MONTELUKAST SODIUM [Concomitant]
  8. MONTELUKAST [Concomitant]
  9. ATROVENT [Concomitant]
  10. ALL OTHER THERAPEUTIC PRODUCTS [Concomitant]
  11. DONEPEZIL HCL [Concomitant]
  12. ASTELIN [Concomitant]

REACTIONS (1)
  - ERECTILE DYSFUNCTION [None]
